FAERS Safety Report 8238230 (Version 9)
Quarter: 2016Q1

REPORT INFORMATION
  Report Type: Report from Study
  Country: IT (occurrence: IT)
  Receive Date: 20111109
  Receipt Date: 20160205
  Transmission Date: 20160526
  Serious: Yes (Death, Life-Threatening, Hospitalization)
  Sender: FDA-Public Use
  Company Number: PHHO2008IT06575

PATIENT

DRUGS (7)
  1. PARACETAMOL [Concomitant]
     Active Substance: ACETAMINOPHEN
  2. GILENYA [Suspect]
     Active Substance: FINGOLIMOD HYDROCHLORIDE
     Indication: MULTIPLE SCLEROSIS
     Dosage: 1.25 MG, QD
     Route: 048
     Dates: start: 20070712, end: 20080523
  3. CLARITHROMYCIN. [Concomitant]
     Active Substance: CLARITHROMYCIN
  4. IBUPROFEN. [Concomitant]
     Active Substance: IBUPROFEN
  5. FLURBIPROFEN. [Concomitant]
     Active Substance: FLURBIPROFEN
  6. SERTRALINE HYDROCHLORIDE. [Concomitant]
     Active Substance: SERTRALINE HYDROCHLORIDE
  7. SOLU-MEDROL [Suspect]
     Active Substance: METHYLPREDNISOLONE SODIUM SUCCINATE
     Indication: MULTIPLE SCLEROSIS RELAPSE
     Route: 065
     Dates: start: 20080516, end: 20080520

REACTIONS (42)
  - Pericardial effusion [Unknown]
  - Atelectasis [Unknown]
  - Asthenia [Fatal]
  - Disseminated intravascular coagulation [Fatal]
  - Hydrothorax [Unknown]
  - Pericarditis [Unknown]
  - Transaminases increased [Fatal]
  - Hepatic necrosis [Fatal]
  - Fatigue [Fatal]
  - Paraesthesia [Unknown]
  - Ascites [Unknown]
  - Bradycardia [Fatal]
  - Alopecia [Recovered/Resolved]
  - Depression [Recovered/Resolved]
  - Viral oesophagitis [Fatal]
  - Fibrosis [Fatal]
  - Muscular weakness [Recovered/Resolved]
  - Hemiparesis [Unknown]
  - Presyncope [Unknown]
  - Petechiae [Unknown]
  - Immunosuppression [Fatal]
  - Abdominal pain upper [Fatal]
  - Hepatitis [Fatal]
  - Hepatic function abnormal [Fatal]
  - Non-alcoholic fatty liver [Fatal]
  - Herpes zoster disseminated [Fatal]
  - Peripheral venous disease [Unknown]
  - Blister [Fatal]
  - Multiple sclerosis relapse [Unknown]
  - Hypoaesthesia [Unknown]
  - Oedema [Unknown]
  - Haematoma [Unknown]
  - Fibrin D dimer increased [Fatal]
  - Haematuria [Fatal]
  - Uterine leiomyoma [Unknown]
  - Tension headache [Recovered/Resolved]
  - Gait disturbance [Unknown]
  - Thrombocytopenia [Unknown]
  - Viraemia [Fatal]
  - Renal haemorrhage [Fatal]
  - Acute hepatic failure [Fatal]
  - Ovarian cyst [Unknown]

NARRATIVE: CASE EVENT DATE: 200707
